FAERS Safety Report 23502296 (Version 1)
Quarter: 2024Q1

REPORT INFORMATION
  Report Type: Other
  Country: JP (occurrence: JP)
  Receive Date: 20240208
  Receipt Date: 20240208
  Transmission Date: 20240410
  Serious: Yes (Hospitalization)
  Sender: FDA-Public Use
  Company Number: JP-Merck Healthcare KGaA-2024006081

PATIENT
  Age: 38 Year
  Sex: Female
  Weight: 84 kg

DRUGS (14)
  1. METGLUCO [Suspect]
     Active Substance: METFORMIN HYDROCHLORIDE
     Indication: Type 2 diabetes mellitus
     Route: 048
  2. FOLLITROPIN [Concomitant]
     Active Substance: FOLLITROPIN
     Indication: Blood gonadotrophin decreased
     Dosage: OVULATION INDUCTION 1 : 75 IU FOR 6 DAYS. LATER, 112.5 IU. THEN, 150 IU, 300 IU ON A ALTERNATE DAY.
  3. FOLLITROPIN [Concomitant]
     Active Substance: FOLLITROPIN
     Indication: Ovulation induction
     Dosage: DURING OVULATION INDUCTION 2: RFSH 112.5 IU WAS ADMINISTERED DAILY
  4. FOLLITROPIN [Concomitant]
     Active Substance: FOLLITROPIN
     Dosage: OVULATION INDUCTION 3: DAILY ADMINISTRATION OF RFSH 112.5 IU STARTING FROM DAY 8
  5. FOLLITROPIN [Concomitant]
     Active Substance: FOLLITROPIN
     Dosage: OVULATION INDUCTION 5: ALTERNATEDAY 150 IU THEN DAILY 150 IU FROM DAY 14.
  6. FOLLITROPIN [Concomitant]
     Active Substance: FOLLITROPIN
     Dosage: OVULATION INDUCTION 5: IN 2ND CYCLE, DAILY 112.5 IU ON DAY 9 THEN DAILY 150 IU FROM DAY 21
  7. ESTRADIOL [Concomitant]
     Active Substance: ESTRADIOL
     Indication: Product used for unknown indication
     Dosage: POULTICE
  8. VITAMIN D3 [Concomitant]
     Active Substance: CHOLECALCIFEROL
     Indication: Osteoporosis
  9. DUPHASTON [Concomitant]
     Active Substance: DYDROGESTERONE
     Indication: Product used for unknown indication
  10. HUMAN CHORIONIC GONADOTROPIN [Concomitant]
     Active Substance: GONADOTROPHIN, CHORIONIC
     Indication: Ovulation induction
     Dosage: OVULATION INDUCTION 2: 5000 IU (INTERNATIONAL UNIT WAS ADMINISTERED)
  11. HUMAN CHORIONIC GONADOTROPIN [Concomitant]
     Active Substance: GONADOTROPHIN, CHORIONIC
     Dosage: OVULATION INDUCTION CYCLE 5: 5000 IU FOR 2 DAYS (A TOTAL OF 10000 IU) TO PROMOTE OVULATION.
  12. GONADOTROPHIN, CHORIONIC [Concomitant]
     Active Substance: GONADOTROPHIN, CHORIONIC
     Indication: Secondary hypogonadism
     Dosage: OVULATION INDUCTION CYCLE 3: DAILY ADMINISTRATION OF 75 IU. THEN INCREASED TO 150 IU ON DAY 22.
  13. GONADOTROPHIN, CHORIONIC [Concomitant]
     Active Substance: GONADOTROPHIN, CHORIONIC
     Indication: Ovulation induction
     Dosage: OVULATION INDUCTION CYCLE 3: 150 IU ON DAY 10  DAILY. THNE DOSE OF HMG WAS INCREASED TO 225 IU.
  14. GONADOTROPHIN, CHORIONIC [Concomitant]
     Active Substance: GONADOTROPHIN, CHORIONIC
     Dosage: OVULATION CYCLE 3:ALTERNATE DAY 75 IU THEN 150 IU FROM DAY13, 225 IU FROM DAY18 AND 300IU FROMDAY 24

REACTIONS (3)
  - Threatened labour [Recovered/Resolved]
  - Maternal exposure during pregnancy [Recovered/Resolved]
  - Normal newborn [Recovered/Resolved]
